FAERS Safety Report 10233132 (Version 4)
Quarter: 2015Q1

REPORT INFORMATION
  Report Type: Report from Study
  Country: SE (occurrence: SE)
  Receive Date: 20140612
  Receipt Date: 20150303
  Transmission Date: 20150720
  Serious: Yes (Hospitalization)
  Sender: FDA-Public Use
  Company Number: SE-SA-2014SA074088

PATIENT
  Age: 43 Year
  Sex: Female

DRUGS (3)
  1. TERIFLUNOMIDE [Suspect]
     Active Substance: TERIFLUNOMIDE
     Indication: MULTIPLE SCLEROSIS RELAPSE
     Route: 048
     Dates: start: 20140321
  2. PANODIL [Concomitant]
     Active Substance: ACETAMINOPHEN
     Route: 048
     Dates: start: 201212
  3. IPREN [Concomitant]
     Active Substance: IBUPROFEN
     Route: 048
     Dates: start: 201212

REACTIONS (2)
  - Cholecystitis [Recovered/Resolved]
  - Alanine aminotransferase increased [Recovered/Resolved]

NARRATIVE: CASE EVENT DATE: 20140517
